FAERS Safety Report 6894142-9 (Version None)
Quarter: 2010Q3

REPORT INFORMATION
  Report Type: 
  Country: None (occurrence: None)
  Receive Date: 20100708
  Receipt Date: 20091201
  Transmission Date: 20110219
  Serious: Yes (Hospitalization, Other)
  Sender: FDA-Public Use
  Company Number: 2009295466

PATIENT
  Sex: Male
  Weight: 75 kg

DRUGS (2)
  1. CHANTIX [Suspect]
     Indication: TOBACCO ABUSE
     Dosage: ORAL
     Route: 048
     Dates: start: 20090101, end: 20090901
  2. VICODIN [Suspect]
     Indication: HEADACHE
     Dates: end: 20090901

REACTIONS (3)
  - DEPRESSION [None]
  - SUICIDAL BEHAVIOUR [None]
  - SUICIDAL IDEATION [None]
